FAERS Safety Report 9153784 (Version 1)
Quarter: 2013Q1

REPORT INFORMATION
  Report Type: Spontaneous
  Country: US (occurrence: US)
  Receive Date: 20130311
  Receipt Date: 20130311
  Transmission Date: 20140127
  Serious: No
  Sender: FDA-Public Use
  Company Number: US-JNJFOC-20130203864

PATIENT
  Age: 38 None
  Sex: Female
  Weight: 108.41 kg

DRUGS (9)
  1. INVEGA SUSTENNA [Suspect]
     Indication: BIPOLAR DISORDER
     Route: 030
     Dates: start: 201212
  2. LAMICTAL [Concomitant]
     Route: 048
  3. DESYREL (TRAZADONE HCL) [Concomitant]
     Dosage: 3 TABLETS OF 50 MG AT ONCE
     Route: 048
  4. PRAVASTATIN [Concomitant]
     Indication: BLOOD CHOLESTEROL
     Route: 048
  5. METOPROLOL [Concomitant]
     Indication: BLOOD PRESSURE
     Route: 048
  6. BUPROPION [Concomitant]
     Indication: DEPRESSION
     Route: 048
  7. ATROPINE [Concomitant]
     Indication: SALIVARY HYPERSECRETION
     Dosage: 1-2 DROPS AS NEEDED
     Route: 060
  8. HYDROCODONE [Concomitant]
     Indication: PAIN
     Dosage: 5/500 MG AS NEEDED
     Route: 048
  9. CLOZAPINE [Concomitant]
     Indication: BIPOLAR DISORDER
     Route: 048

REACTIONS (2)
  - Wrong technique in drug usage process [Not Recovered/Not Resolved]
  - Injection site nodule [Not Recovered/Not Resolved]
